FAERS Safety Report 8162231-7 (Version None)
Quarter: 2012Q1

REPORT INFORMATION
  Report Type: 
  Country: None (occurrence: None)
  Receive Date: 20120224
  Receipt Date: 20111019
  Transmission Date: 20120608
  Serious: No
  Sender: FDA-Public Use
  Company Number: US-BRISTOL-MYERS SQUIBB COMPANY-16159360

PATIENT
  Age: 74 Year
  Sex: Female

DRUGS (4)
  1. METFORMIN HCL [Suspect]
     Indication: DIABETES MELLITUS
  2. AMARYL [Suspect]
     Indication: DIABETES MELLITUS
     Route: 048
  3. LANTUS [Suspect]
     Indication: TYPE 2 DIABETES MELLITUS
  4. METFORMIN HCL [Suspect]
     Indication: DIABETES MELLITUS
     Dates: start: 20110917

REACTIONS (10)
  - BLOOD PRESSURE INCREASED [None]
  - ABDOMINAL DISCOMFORT [None]
  - DIARRHOEA [None]
  - MUSCLE SPASMS [None]
  - FEELING HOT [None]
  - JOINT SWELLING [None]
  - WEIGHT INCREASED [None]
  - OEDEMA PERIPHERAL [None]
  - BONE PAIN [None]
  - ORAL HERPES [None]
